FAERS Safety Report 11531176 (Version 1)
Quarter: 2015Q3

REPORT INFORMATION
  Report Type: Spontaneous
  Country: CN (occurrence: CN)
  Receive Date: 20150921
  Receipt Date: 20150921
  Transmission Date: 20151125
  Serious: Yes (Death)
  Sender: FDA-Public Use
  Company Number: CN-FRESENIUS KABI-FK201504407

PATIENT
  Sex: Female

DRUGS (4)
  1. DOXORUBICIN [Suspect]
     Active Substance: DOXORUBICIN
     Indication: GENITAL NEOPLASM MALIGNANT FEMALE
     Route: 065
  2. CISPLATIN (MANUFACTURER UNKNOWN) [Suspect]
     Active Substance: CISPLATIN
     Indication: GENITAL NEOPLASM MALIGNANT FEMALE
     Route: 065
  3. FLUOROURACIL (MANUFACTURER UNKNOWN) [Suspect]
     Active Substance: FLUOROURACIL
     Indication: GENITAL NEOPLASM MALIGNANT FEMALE
     Route: 065
  4. DACTINOMYCIN [Suspect]
     Active Substance: DACTINOMYCIN
     Indication: GENITAL NEOPLASM MALIGNANT FEMALE
     Route: 065

REACTIONS (1)
  - Cardiac failure [Fatal]
